FAERS Safety Report 18715530 (Version 2)
Quarter: 2022Q2

REPORT INFORMATION
  Report Type: Report from Study
  Country: US (occurrence: US)
  Receive Date: 20210108
  Receipt Date: 20220428
  Transmission Date: 20220721
  Serious: No
  Sender: FDA-Public Use
  Company Number: US-ACADIA PHARMACEUTICALS INC.-ACA-2020-PIM-004031

PATIENT
  Age: 68 Year
  Sex: Male

DRUGS (13)
  1. NUPLAZID [Suspect]
     Active Substance: PIMAVANSERIN TARTRATE
     Indication: Parkinson^s disease
     Dosage: 10 MILLIGRAM, QD
     Route: 048
     Dates: start: 20201118
  2. INSULIN NOS [Concomitant]
     Active Substance: INSULIN NOS
     Dosage: BD NANO 2ND GEN PEN NEEDLE 32 GAUGE*5/32^
  3. CARBIDOPA\LEVODOPA [Concomitant]
     Active Substance: CARBIDOPA\LEVODOPA
     Dosage: 0.5 TABLET 3 TIMES A DAY
     Route: 048
  4. CARBIDOPA\LEVODOPA [Concomitant]
     Active Substance: CARBIDOPA\LEVODOPA
     Dosage: 1 TABLET 4 TIMES DAILY AT 8 AM, 12PM, 5PM AND BEDTIME
  5. FIASP [Concomitant]
     Active Substance: INSULIN ASPART
     Dosage: U-100 INSULIN 100 UNIT/ML-INJECT 16 UNITS EVERY DAY
     Route: 058
  6. PANTOPRAZOLE [Concomitant]
     Active Substance: PANTOPRAZOLE
     Dosage: 1 TABLET QD
     Route: 048
  7. ROSUVASTATIN [Concomitant]
     Active Substance: ROSUVASTATIN
     Dosage: 1 TABLET EVERY DAY
     Route: 048
  8. TRESIBA [Concomitant]
     Active Substance: INSULIN DEGLUDEC
     Dosage: U-200 INSULIN 200 UNIT/ML (3ML) SUBCUTANEOUS PEN
  9. VICTOZA [Concomitant]
     Active Substance: LIRAGLUTIDE
     Dosage: 0.6 MG/0.1ML (18 MG/3 ML) SUBCUTANEOUS PEN INJECTOR
  10. VITAMIN B12 [Concomitant]
     Active Substance: CYANOCOBALAMIN
  11. WARFARIN [Concomitant]
     Active Substance: WARFARIN
     Dosage: 4 ORAL 6 DAYS PER WEEK
  12. WARFARIN [Concomitant]
     Active Substance: WARFARIN
     Dosage: 5MG TABLET ONE ORAL
     Dates: start: 20190422
  13. ROPINIROLE [Concomitant]
     Active Substance: ROPINIROLE
     Dosage: 1 TABLET EVERY DAY
     Route: 048

REACTIONS (1)
  - Peripheral swelling [Recovered/Resolved]

NARRATIVE: CASE EVENT DATE: 20201207
